FAERS Safety Report 23545031 (Version 1)
Quarter: 2024Q1

REPORT INFORMATION
  Report Type: Spontaneous
  Country: GR (occurrence: GR)
  Receive Date: 20240220
  Receipt Date: 20240220
  Transmission Date: 20240409
  Serious: Yes (Death, Other)
  Sender: FDA-Public Use
  Company Number: GR-AMGEN-GRCSP2024030607

PATIENT

DRUGS (3)
  1. PROLIA [Suspect]
     Active Substance: DENOSUMAB
     Indication: Osteoporosis
     Dosage: UNK
     Route: 065
  2. CALCIUM [Concomitant]
     Active Substance: CALCIUM
     Dosage: 1000 MILLIGRAM
  3. VITAMIN D [Concomitant]
     Active Substance: VITAMIN D NOS
     Dosage: 800 INTERNATIONAL UNIT
     Route: 065

REACTIONS (6)
  - Death [Fatal]
  - Spinal fracture [Unknown]
  - Periprosthetic fracture [Unknown]
  - Hip fracture [Unknown]
  - Radius fracture [Unknown]
  - Forearm fracture [Unknown]
